FAERS Safety Report 15926508 (Version 2)
Quarter: 2019Q1

REPORT INFORMATION
  Report Type: Spontaneous
  Country: US (occurrence: US)
  Receive Date: 20190205
  Receipt Date: 20190219
  Transmission Date: 20190417
  Serious: No
  Sender: FDA-Public Use
  Company Number: US-ALLERGAN-1846235US

PATIENT
  Age: 59 Year
  Sex: Female
  Weight: 62.59 kg

DRUGS (3)
  1. BOTOX COSMETIC [Suspect]
     Active Substance: ONABOTULINUMTOXINA
     Indication: SKIN WRINKLING
     Dosage: 35 UNITS, SINGLE
     Route: 030
     Dates: start: 20180912, end: 20180912
  2. BOTOX COSMETIC [Suspect]
     Active Substance: ONABOTULINUMTOXINA
     Indication: SKIN WRINKLING
  3. BOTOX COSMETIC [Suspect]
     Active Substance: ONABOTULINUMTOXINA
     Indication: SKIN WRINKLING
     Dosage: ACTUAL: 4U CROWS FEET (2U EACH SIDE), 5U UNDER HER EYES
     Route: 030
     Dates: start: 20180919, end: 20180919

REACTIONS (6)
  - Product administered at inappropriate site [Unknown]
  - Skin wrinkling [Not Recovered/Not Resolved]
  - Product preparation error [Unknown]
  - Off label use [Unknown]
  - Vascular skin disorder [Not Recovered/Not Resolved]
  - Injection site pain [Recovered/Resolved]

NARRATIVE: CASE EVENT DATE: 20180919
